FAERS Safety Report 4587885-3 (Version None)
Quarter: 2005Q1

REPORT INFORMATION
  Report Type: 
  Country: None (occurrence: None)
  Receive Date: 20050125
  Receipt Date: 20040927
  Transmission Date: 20050727
  Serious: No
  Sender: FDA-Public Use
  Company Number: USA040979421

PATIENT
  Age: 55 Year
  Sex: Female

DRUGS (2)
  1. FORTEO [Suspect]
     Dates: start: 20040101, end: 20040901
  2. ACTOS (RIOGLITAZONE HYDROCHLORIDE) [Concomitant]

REACTIONS (3)
  - HYPOAESTHESIA [None]
  - PAIN IN EXTREMITY [None]
  - PARAESTHESIA [None]
